FAERS Safety Report 17367543 (Version 1)
Quarter: 2020Q1

REPORT INFORMATION
  Report Type: Spontaneous
  Country: CH (occurrence: CH)
  Receive Date: 20200204
  Receipt Date: 20200204
  Transmission Date: 20200409
  Serious: Yes (Hospitalization)
  Sender: FDA-Public Use
  Company Number: CH-PFIZER INC-2020040898

PATIENT
  Age: 81 Year
  Sex: Female
  Weight: 61 kg

DRUGS (11)
  1. JAKAVI [Interacting]
     Active Substance: RUXOLITINIB
     Dosage: 15 MG, 2X/DAY
     Dates: start: 20200104
  2. ONDANSETRON HCL [Concomitant]
     Active Substance: ONDANSETRON HYDROCHLORIDE
     Dosage: AS NECESSARY
     Dates: start: 20191231
  3. ATACAND [Interacting]
     Active Substance: CANDESARTAN CILEXETIL
     Dosage: 4 MG, 1X/DAY
     Dates: end: 20200102
  4. ASS CARDIO [Interacting]
     Active Substance: ASPIRIN
     Dosage: 100 MG, 1X/DAY
     Dates: end: 20200102
  5. JAKAVI [Interacting]
     Active Substance: RUXOLITINIB
     Dosage: 15 MG, 2X/DAY
     Dates: start: 201803, end: 20200101
  6. FRAGMIN [Interacting]
     Active Substance: DALTEPARIN SODIUM
     Dosage: 5000 IU, 1X/DAY
     Route: 058
     Dates: start: 20200107
  7. MORPHINE HCL [Concomitant]
     Active Substance: MORPHINE HYDROCHLORIDE
     Dosage: AS NECESSARY
     Dates: start: 20191231
  8. FRAGMIN [Suspect]
     Active Substance: DALTEPARIN SODIUM
     Dosage: 5000 IU, 1X/DAY
     Route: 058
     Dates: start: 20191231, end: 20200101
  9. JADENU [Interacting]
     Active Substance: DEFERASIROX
     Indication: IRON OVERLOAD
     Dosage: 360 MG, 2X/DAY
     Dates: start: 201808, end: 20200102
  10. VALTREX [Concomitant]
     Active Substance: VALACYCLOVIR HYDROCHLORIDE
     Dosage: 500 MG, 2X/DAY
     Dates: start: 201803
  11. CO AMOXICILLIN [Concomitant]
     Active Substance: AMOXICILLIN\CLAVULANATE POTASSIUM
     Dosage: 2.2 G, 3X/DAY
     Route: 041
     Dates: start: 20191231, end: 20200105

REACTIONS (4)
  - Drug interaction [Not Recovered/Not Resolved]
  - Enterocolitis [Not Recovered/Not Resolved]
  - Gastrointestinal haemorrhage [Not Recovered/Not Resolved]
  - Thrombocytopenia [Not Recovered/Not Resolved]

NARRATIVE: CASE EVENT DATE: 20200102
